FAERS Safety Report 6942175-6 (Version None)
Quarter: 2010Q3

REPORT INFORMATION
  Report Type: 
  Country: None (occurrence: None)
  Receive Date: 20100826
  Receipt Date: 20100823
  Transmission Date: 20110219
  Serious: Yes (Other)
  Sender: FDA-Public Use
  Company Number: US-JNJCH-2008003299

PATIENT
  Age: 53 Year
  Sex: Male

DRUGS (5)
  1. NICORETTE [Suspect]
     Indication: SMOKING CESSATION THERAPY
     Dosage: TEXT:UNKNOWN
     Route: 048
  2. NICORETTE [Suspect]
     Indication: SMOKING CESSATION THERAPY
     Dosage: TEXT:UNKNOWN
     Route: 065
  3. NICOTINE [Suspect]
     Dosage: TEXT:UNKNOWN
     Route: 065
  4. ALL OTHER NON-THERAPEUTIC PRODUCTS [Concomitant]
     Route: 065
  5. NICOTINE POLACRILEX [Concomitant]
     Route: 065

REACTIONS (8)
  - APPLICATION SITE ERYTHEMA [None]
  - BLOOD GLUCOSE INCREASED [None]
  - BLOOD PRESSURE INCREASED [None]
  - DEPENDENCE [None]
  - PAIN IN JAW [None]
  - PRODUCT QUALITY ISSUE [None]
  - THERAPEUTIC RESPONSE UNEXPECTED [None]
  - TOOTHACHE [None]
